FAERS Safety Report 6421866-X (Version None)
Quarter: 2009Q4

REPORT INFORMATION
  Report Type: 
  Country: None (occurrence: None)
  Receive Date: 20091029
  Receipt Date: 20091029
  Transmission Date: 20100525
  Serious: No
  Sender: FDA-Public Use
  Company Number: None

PATIENT
  Sex: Female
  Weight: 55 kg

DRUGS (1)
  1. GENTAMICIN [Suspect]
     Indication: PYELONEPHRITIS
     Dosage: 240MG Q24H IV
     Route: 042
     Dates: start: 20091021, end: 20091027

REACTIONS (1)
  - NEUROPATHY PERIPHERAL [None]
